FAERS Safety Report 5882774-6 (Version None)
Quarter: 2008Q3

REPORT INFORMATION
  Report Type: 
  Country: None (occurrence: None)
  Receive Date: 20080913
  Receipt Date: 20080821
  Transmission Date: 20090109
  Serious: No
  Sender: FDA-Public Use
  Company Number: US-ABBOTT-08P-163-0471221-00

PATIENT
  Sex: Female

DRUGS (15)
  1. HUMIRA [Suspect]
     Indication: CROHN'S DISEASE
     Route: 050
     Dates: start: 20080701
  2. CANCER MEDICINE [Concomitant]
     Indication: NEOPLASM MALIGNANT
  3. PANTOPRAZOLE [Concomitant]
     Indication: GASTRIC DISORDER
     Route: 048
  4. ALPRAZOLAM [Concomitant]
     Indication: ANXIETY
     Route: 048
  5. ESOMEPRAZOLE MAGNESIUM [Concomitant]
     Indication: GASTRIC DISORDER
     Route: 048
  6. SERTRALINE [Concomitant]
     Indication: DEPRESSION
     Route: 048
  7. LOMOTIL [Concomitant]
     Indication: DIARRHOEA
     Route: 048
  8. METFORMIN HCL [Concomitant]
     Indication: DIABETES MELLITUS
     Route: 048
  9. POTASSIUM CHLORIDE [Concomitant]
     Indication: MINERAL SUPPLEMENTATION
     Route: 048
  10. ANCOVERT [Concomitant]
     Indication: DIZZINESS
     Route: 048
  11. VAYPRO [Concomitant]
     Indication: NEOPLASM MALIGNANT
     Route: 048
  12. DIOVAN HCT [Concomitant]
     Indication: BLOOD PRESSURE
     Route: 048
  13. LORTAB [Concomitant]
     Indication: PAIN
     Route: 048
  14. WARFARIN SODIUM [Concomitant]
     Indication: ANTICOAGULANT THERAPY
     Route: 048
  15. CALCIUM [Concomitant]
     Indication: MINERAL SUPPLEMENTATION
     Route: 048

REACTIONS (1)
  - ACCIDENTAL EXPOSURE [None]
